FAERS Safety Report 16063384 (Version 2)
Quarter: 2019Q1

REPORT INFORMATION
  Report Type: Spontaneous
  Country: GB (occurrence: GB)
  Receive Date: 20190312
  Receipt Date: 20190322
  Transmission Date: 20190418
  Serious: Yes (Other)
  Sender: FDA-Public Use
  Company Number: GB-BAYER-2019-044904

PATIENT
  Age: 32 Year
  Sex: Female

DRUGS (1)
  1. MIRENA [Suspect]
     Active Substance: LEVONORGESTREL
     Indication: CONTRACEPTION
     Dosage: 20 MCG/24HR, CONT
     Route: 015
     Dates: start: 201810

REACTIONS (12)
  - Deafness transitory [Recovered/Resolved]
  - Eye swelling [Recovering/Resolving]
  - Vision blurred [Recovered/Resolved]
  - Fatigue [None]
  - Tinnitus [Recovering/Resolving]
  - Swelling face [Recovering/Resolving]
  - Contusion [Recovering/Resolving]
  - Toxicity to various agents [None]
  - Mouth swelling [Recovering/Resolving]
  - Headache [Recovered/Resolved]
  - Neck pain [None]
  - Musculoskeletal disorder [None]

NARRATIVE: CASE EVENT DATE: 201810
